FAERS Safety Report 6202313-X (Version None)
Quarter: 2009Q2

REPORT INFORMATION
  Report Type: 
  Country: None (occurrence: None)
  Receive Date: 20090526
  Receipt Date: 20090519
  Transmission Date: 20091009
  Serious: Yes (Other)
  Sender: FDA-Public Use
  Company Number: GB-ABBOTT-09P-167-0574655-00

PATIENT
  Sex: Female

DRUGS (2)
  1. PROSTAP SR [Suspect]
     Indication: ENDOMETRIOSIS
     Route: 058
     Dates: start: 20090325
  2. TIBOLONE [Concomitant]
     Indication: DRUG USE FOR UNKNOWN INDICATION
     Dates: start: 20090323

REACTIONS (4)
  - ALOPECIA [None]
  - RASH PAPULAR [None]
  - SKIN LESION [None]
  - WOUND SECRETION [None]
